FAERS Safety Report 5222037-5 (Version None)
Quarter: 2007Q1

REPORT INFORMATION
  Report Type: 
  Country: None (occurrence: None)
  Receive Date: 20070129
  Receipt Date: 20060417
  Transmission Date: 20070707
  Serious: No
  Sender: FDA-Public Use
  Company Number: US-GLAXOSMITHKLINE-A0601945A

PATIENT
  Age: 55 Year
  Sex: Female

DRUGS (3)
  1. WELLBUTRIN [Suspect]
     Indication: ANXIETY
     Dosage: 75MG PER DAY
     Route: 048
     Dates: start: 20060327
  2. ESTRADIOL [Concomitant]
  3. TESTOSTERONE [Concomitant]

REACTIONS (1)
  - BLOOD TESTOSTERONE INCREASED [None]
